FAERS Safety Report 7965841-2 (Version None)
Quarter: 2011Q4

REPORT INFORMATION
  Report Type: 
  Country: None (occurrence: None)
  Receive Date: 20111208
  Receipt Date: 20111206
  Transmission Date: 20120403
  Serious: Yes (Other)
  Sender: FDA-Public Use
  Company Number: US-AMGEN-USASP2011065128

PATIENT
  Sex: Female

DRUGS (1)
  1. NPLATE [Suspect]
     Indication: APLASTIC ANAEMIA
     Dates: start: 20110415

REACTIONS (3)
  - APLASTIC ANAEMIA [None]
  - THROMBOCYTOPENIA [None]
  - HAEMATOLOGICAL MALIGNANCY [None]
